FAERS Safety Report 11113392 (Version 1)
Quarter: 2015Q2

REPORT INFORMATION
  Report Type: Spontaneous
  Country: GB (occurrence: GB)
  Receive Date: 20150514
  Receipt Date: 20150514
  Transmission Date: 20150821
  Serious: Yes (Other)
  Sender: FDA-Public Use
  Company Number: GB-ASTRAZENECA-2015SE42821

PATIENT
  Age: 23 Year
  Sex: Female
  Weight: 69.8 kg

DRUGS (4)
  1. LEVEMIR [Concomitant]
     Active Substance: INSULIN DETEMIR
  2. ATOMOXETINE [Concomitant]
     Active Substance: ATOMOXETINE
  3. NOVORAPID [Concomitant]
     Active Substance: INSULIN ASPART
  4. FORXIGA [Suspect]
     Active Substance: DAPAGLIFLOZIN
     Indication: WEIGHT CONTROL
     Route: 048
     Dates: start: 20150422, end: 20150424

REACTIONS (29)
  - Myalgia [Recovered/Resolved with Sequelae]
  - Disturbance in attention [Recovered/Resolved]
  - Dry skin [Recovering/Resolving]
  - Adnexa uteri pain [Recovered/Resolved]
  - Hyperhidrosis [Recovered/Resolved]
  - Irritability [Recovered/Resolved]
  - Ear pain [Recovered/Resolved]
  - Somnolence [Recovered/Resolved]
  - Dry eye [Recovering/Resolving]
  - Peripheral swelling [Recovering/Resolving]
  - Paraesthesia [Recovered/Resolved]
  - Depersonalisation [Recovered/Resolved]
  - Swelling face [Recovering/Resolving]
  - Insomnia [Recovering/Resolving]
  - Flushing [Recovered/Resolved]
  - Dehydration [Recovered/Resolved with Sequelae]
  - Blood glucose decreased [Recovered/Resolved]
  - Pollakiuria [Recovered/Resolved]
  - Suicidal ideation [Recovered/Resolved]
  - Depressed mood [Recovered/Resolved]
  - Heart rate increased [Recovered/Resolved with Sequelae]
  - Chills [Recovered/Resolved]
  - Hypoaesthesia [Recovering/Resolving]
  - Pain [Recovered/Resolved]
  - Headache [Recovered/Resolved]
  - Abdominal pain upper [Recovered/Resolved]
  - Dizziness [Recovered/Resolved]
  - Confusional state [Recovered/Resolved]
  - Intentional product misuse [Unknown]

NARRATIVE: CASE EVENT DATE: 20150422
